FAERS Safety Report 21139392 (Version 4)
Quarter: 2022Q3

REPORT INFORMATION
  Report Type: Report from Study
  Country: JP (occurrence: JP)
  Receive Date: 20220727
  Receipt Date: 20220826
  Transmission Date: 20221027
  Serious: Yes (Hospitalization, Other)
  Sender: FDA-Public Use
  Company Number: JP-ONO-2022JP020032

PATIENT
  Age: 66 Year
  Sex: Female
  Weight: 51.6 kg

DRUGS (27)
  1. IPILIMUMAB [Suspect]
     Active Substance: IPILIMUMAB
     Indication: Gastric cancer
     Dosage: MOST RECENT DOSE OF 51.8 MG/KG WAS RECEIVED ON 03-JUN-2022.
     Route: 065
     Dates: start: 20220414
  2. GIMERACIL\OTERACIL\TEGAFUR [Suspect]
     Active Substance: GIMERACIL\OTERACIL\TEGAFUR
     Indication: Gastric cancer
     Dosage: ON  17-JUN-2022 50MG/M2 WAS ADMINISTERED, PRIOR TO THE EVENT ONSET
     Route: 048
     Dates: start: 20220414
  3. OXALIPLATIN [Suspect]
     Active Substance: OXALIPLATIN
     Indication: Gastric cancer
     Dosage: MOST RECENT DOSE OF 144 MG/M2 WAS ADMINISTERED ON 03-JUN-2022, PRIOR TO EVENT ONSET
     Route: 065
     Dates: start: 20220414
  4. Sodium Picosulfate Solution [Concomitant]
     Indication: Constipation
     Dosage: 1 DOSAGE FORM= 15 UNIT NOS
     Route: 048
     Dates: start: 20220416, end: 20220416
  5. AZILVA Tablets [Concomitant]
     Indication: Hypertension
     Route: 048
  6. Primperan Tablets [Concomitant]
     Indication: Nausea
     Route: 048
     Dates: start: 20220419
  7. DEXCHLORPHENIRAMINE MALEATE [Concomitant]
     Active Substance: DEXCHLORPHENIRAMINE MALEATE
     Indication: Product used for unknown indication
     Dosage: 5 MG
     Route: 065
     Dates: start: 20220506, end: 20220506
  8. FAMOTIDINE [Concomitant]
     Active Substance: FAMOTIDINE
     Indication: Product used for unknown indication
     Route: 065
     Dates: start: 20220414, end: 20220414
  9. FAMOTIDINE [Concomitant]
     Active Substance: FAMOTIDINE
     Route: 065
     Dates: start: 20220506, end: 20220506
  10. FAMOTIDINE [Concomitant]
     Active Substance: FAMOTIDINE
     Route: 065
     Dates: start: 20220603, end: 20220603
  11. PALONOSETRON HYDROCHLORIDE [Concomitant]
     Active Substance: PALONOSETRON HYDROCHLORIDE
     Indication: Product used for unknown indication
     Route: 065
     Dates: start: 20220506, end: 20220506
  12. DEXAMETHASONE SODIUM PHOSPHATE [Concomitant]
     Active Substance: DEXAMETHASONE SODIUM PHOSPHATE
     Indication: Product used for unknown indication
     Route: 065
     Dates: start: 20220506, end: 20220506
  13. EMEND [Concomitant]
     Active Substance: APREPITANT
     Indication: Product used for unknown indication
     Route: 048
     Dates: start: 20220414, end: 20220414
  14. EMEND [Concomitant]
     Active Substance: APREPITANT
     Route: 048
     Dates: start: 20220415, end: 20220416
  15. EMEND [Concomitant]
     Active Substance: APREPITANT
     Route: 048
     Dates: start: 20220506, end: 20220506
  16. DECADRON [Concomitant]
     Active Substance: DEXAMETHASONE
     Indication: Product used for unknown indication
     Route: 048
     Dates: start: 20220415, end: 20220416
  17. MAGNESIUM OXIDE [Concomitant]
     Active Substance: MAGNESIUM OXIDE
     Indication: Constipation
     Route: 065
     Dates: start: 20220422
  18. BIO-THREE OD Tablets [Concomitant]
     Indication: Constipation
     Dosage: 3 DF= 3 UNITS NOS
     Route: 048
     Dates: start: 20220422
  19. POLARAMINE [Concomitant]
     Active Substance: DEXCHLORPHENIRAMINE MALEATE
     Indication: Product used for unknown indication
     Route: 065
     Dates: start: 20220414, end: 20220414
  20. POLARAMINE [Concomitant]
     Active Substance: DEXCHLORPHENIRAMINE MALEATE
     Route: 065
     Dates: start: 20220603, end: 20220603
  21. Aloxi I.V.injection [Concomitant]
     Indication: Product used for unknown indication
     Route: 041
     Dates: start: 20220414, end: 20220414
  22. Aloxi I.V.injection [Concomitant]
     Route: 041
     Dates: start: 20220603, end: 20220603
  23. DEXAMETHASONE SODIUM PHOSPHATE [Concomitant]
     Active Substance: DEXAMETHASONE SODIUM PHOSPHATE
     Indication: Product used for unknown indication
     Route: 065
     Dates: start: 20220414, end: 20220414
  24. DEXAMETHASONE SODIUM PHOSPHATE [Concomitant]
     Active Substance: DEXAMETHASONE SODIUM PHOSPHATE
     Route: 065
     Dates: start: 20220603, end: 20220603
  25. SENNOSIDES [Concomitant]
     Active Substance: SENNOSIDES
     Indication: Constipation
     Route: 048
     Dates: start: 20220415, end: 20220506
  26. RINDERON V [Concomitant]
     Active Substance: BETAMETHASONE VALERATE
     Indication: Product used for unknown indication
     Dosage: UNK
     Route: 061
     Dates: start: 20220527
  27. OLOPATADINE HYDROCHLORIDE [Concomitant]
     Active Substance: OLOPATADINE HYDROCHLORIDE
     Indication: Product used for unknown indication
     Route: 065
     Dates: start: 20220527, end: 20220603

REACTIONS (1)
  - Cytokine release syndrome [Not Recovered/Not Resolved]

NARRATIVE: CASE EVENT DATE: 20220714
